FAERS Safety Report 9542061 (Version 1)
Quarter: 2013Q3

REPORT INFORMATION
  Report Type: Report from Study
  Country: US (occurrence: US)
  Receive Date: 20130923
  Receipt Date: 20130923
  Transmission Date: 20140515
  Serious: No
  Sender: FDA-Public Use
  Company Number: PHEH2013US019602

PATIENT
  Age: 74 Year
  Sex: Female

DRUGS (11)
  1. TASIGNA [Suspect]
     Indication: CHRONIC MYELOID LEUKAEMIA
     Dosage: 400 MG, BID
     Route: 048
     Dates: start: 20130227
  2. CYMBALTA [Concomitant]
  3. ASPIRIN [Concomitant]
  4. RESTASIS [Concomitant]
  5. SALAGEN [Concomitant]
  6. LOMOTIL [Concomitant]
  7. HYOSCYAMINE [Concomitant]
  8. PLAQUENIL [Concomitant]
  9. DIOVAN [Concomitant]
  10. ATENOLOL [Concomitant]
  11. CADUET [Concomitant]

REACTIONS (3)
  - Flushing [Not Recovered/Not Resolved]
  - Constipation [Not Recovered/Not Resolved]
  - Hyperhidrosis [Not Recovered/Not Resolved]
